FAERS Safety Report 16269233 (Version 1)
Quarter: 2019Q2

REPORT INFORMATION
  Report Type: Spontaneous
  Country: US (occurrence: US)
  Receive Date: 20190502
  Receipt Date: 20190502
  Transmission Date: 20190711
  Serious: Yes (Other)
  Sender: FDA-Public Use
  Company Number: None

PATIENT
  Age: 62 Year
  Sex: Female
  Weight: 58.5 kg

DRUGS (4)
  1. COCHLEAR IMPLANT [Concomitant]
  2. VITAMIN D3 [Concomitant]
     Active Substance: CHOLECALCIFEROL
  3. CALCIUM [Concomitant]
     Active Substance: CALCIUM
  4. CLONAZEPAM 1 MG TABLTS [Suspect]
     Active Substance: CLONAZEPAM
     Indication: MUSCULAR DYSTROPHY
     Dosage: ?          QUANTITY:1 TABLET(S);?
     Route: 048
     Dates: start: 20190425, end: 20190502

REACTIONS (7)
  - Panic attack [None]
  - Insomnia [None]
  - Nightmare [None]
  - Muscle rigidity [None]
  - Anxiety [None]
  - Product substitution issue [None]
  - Somnolence [None]

NARRATIVE: CASE EVENT DATE: 20190501
